FAERS Safety Report 5660718-X (Version None)
Quarter: 2008Q1

REPORT INFORMATION
  Report Type: 
  Country: None (occurrence: None)
  Receive Date: 20080311
  Receipt Date: 20080229
  Transmission Date: 20080703
  Serious: Yes (Hospitalization)
  Sender: FDA-Public Use
  Company Number: HU-ELI_LILLY_AND_COMPANY-HU200802006954

PATIENT
  Age: 62 Year
  Sex: Female

DRUGS (8)
  1. LISPRO [Suspect]
     Dosage: 17 IU, EACH MORNING
     Route: 058
     Dates: start: 20050501
  2. LISPRO [Suspect]
     Dosage: 14 IU, NOON
     Route: 058
     Dates: start: 20050501
  3. LISPRO [Suspect]
     Dosage: 16 IU, EACH EVENING
     Route: 058
     Dates: start: 20050501
  4. LEVEMIR [Concomitant]
     Indication: DIABETES MELLITUS
     Dosage: 21 IU, EACH MORNING
     Route: 058
  5. LEVEMIR [Concomitant]
     Dosage: 21 IU, EACH EVENING
     Route: 058
  6. PREDUCTAL [Concomitant]
     Dosage: UNK, 2/D
     Route: 048
  7. METFORMIN HCL [Concomitant]
     Indication: DIABETES MELLITUS
     Dosage: 425 MG, 2/D
     Route: 065
  8. CRESTOR [Concomitant]
     Dosage: 20 MG, DAILY (1/D)
     Route: 048

REACTIONS (1)
  - LICHEN PLANUS [None]
